FAERS Safety Report 6415635-4 (Version None)
Quarter: 2009Q4

REPORT INFORMATION
  Report Type: 
  Country: None (occurrence: None)
  Receive Date: 20091027
  Receipt Date: 20091019
  Transmission Date: 20100525
  Serious: Yes (Other)
  Sender: FDA-Public Use
  Company Number: US-ROCHE-662918

PATIENT
  Sex: Female
  Weight: 81.2 kg

DRUGS (1)
  1. CAPECITABINE [Suspect]
     Indication: BREAST CANCER
     Dosage: 14/7
     Route: 048
     Dates: start: 20090218, end: 20090701

REACTIONS (5)
  - CENTRAL NERVOUS SYSTEM LESION [None]
  - DISEASE PROGRESSION [None]
  - MALIGNANT NEOPLASM PROGRESSION [None]
  - PALMAR-PLANTAR ERYTHRODYSAESTHESIA SYNDROME [None]
  - SKIN LESION [None]
